FAERS Safety Report 4915996-9 (Version None)
Quarter: 2006Q1

REPORT INFORMATION
  Report Type: 
  Country: None (occurrence: None)
  Receive Date: 20060214
  Receipt Date: 20060203
  Transmission Date: 20060701
  Serious: Yes (Other)
  Sender: FDA-Public Use
  Company Number: US-2006-002154

PATIENT
  Age: 48 Year
  Sex: Female

DRUGS (1)
  1. BETASERON [Suspect]
     Indication: MULTIPLE SCLEROSIS
     Dosage: 6 MIU, EVERY 2D, SUBCUTANEOUS
     Route: 058
     Dates: start: 19950622, end: 20060128

REACTIONS (5)
  - LIVER SCAN ABNORMAL [None]
  - MALAISE [None]
  - POST PROCEDURAL COMPLICATION [None]
  - PULMONARY MASS [None]
  - SPLEEN SCAN ABNORMAL [None]
